FAERS Safety Report 5946649-6 (Version None)
Quarter: 2008Q4

REPORT INFORMATION
  Report Type: 
  Country: None (occurrence: None)
  Receive Date: 20081110
  Receipt Date: 20081028
  Transmission Date: 20090506
  Serious: Yes (Death, Other)
  Sender: FDA-Public Use
  Company Number: IT-ROCHE-571992

PATIENT
  Sex: Male

DRUGS (2)
  1. PEG-INTERFERON ALFA 2A (RO 25-8310) [Suspect]
     Dosage: FORM: VIAL.
     Route: 065
     Dates: start: 20041118, end: 20050520
  2. RIBAVIRIN [Suspect]
     Route: 048
     Dates: start: 20041118, end: 20050520

REACTIONS (3)
  - BILE DUCT STONE [None]
  - LIVER DISORDER [None]
  - TRANSPLANT REJECTION [None]
